FAERS Safety Report 17280595 (Version 2)
Quarter: 2020Q1

REPORT INFORMATION
  Report Type: Spontaneous
  Country: US (occurrence: US)
  Receive Date: 20200117
  Receipt Date: 20200306
  Transmission Date: 20200409
  Serious: No
  Sender: FDA-Public Use
  Company Number: US-UCBSA-2019035864

PATIENT
  Sex: Male

DRUGS (5)
  1. LEVETIRACETAM. [Suspect]
     Active Substance: LEVETIRACETAM
     Indication: JUVENILE MYOCLONIC EPILEPSY
  2. NEURONTIN [Concomitant]
     Active Substance: GABAPENTIN
     Indication: EPILEPSY
  3. APTIOM [Concomitant]
     Active Substance: ESLICARBAZEPINE ACETATE
     Indication: EPILEPSY
  4. BRIVIACT [Suspect]
     Active Substance: BRIVARACETAM
     Indication: JUVENILE MYOCLONIC EPILEPSY
     Dosage: 200 MILLIGRAM, DAILY
  5. PHENYTOIN [PHENYTOIN SODIUM] [Concomitant]
     Indication: EPILEPSY

REACTIONS (1)
  - Negative thoughts [Recovered/Resolved]
